FAERS Safety Report 16039814 (Version 1)
Quarter: 2019Q1

REPORT INFORMATION
  Report Type: Report from Study
  Country: IT (occurrence: IT)
  Receive Date: 20190306
  Receipt Date: 20190306
  Transmission Date: 20190418
  Serious: Yes (Hospitalization, Other)
  Sender: FDA-Public Use
  Company Number: IT-TEVA-2019-IT-1018806

PATIENT
  Age: 45 Year
  Sex: Female

DRUGS (4)
  1. LIPEGFILGRASTIM [Suspect]
     Active Substance: LIPEGFILGRASTIM
     Dosage: ADMINISTERED AT DAY 2 OF THE CYCLE
     Route: 065
  2. FLUOROURACIL. [Suspect]
     Active Substance: FLUOROURACIL
     Dosage: CHEMOTHERAPY CYCLE FEC
     Route: 065
  3. CYCLOPHOSPHAMIDE. [Suspect]
     Active Substance: CYCLOPHOSPHAMIDE
     Dosage: CHEMOTHERAPY CYCLE FEC
     Route: 065
  4. EPIRUBICIN [Suspect]
     Active Substance: EPIRUBICIN
     Dosage: CHEMOTHERAPY CYCLE FEC
     Route: 065

REACTIONS (3)
  - Neutropenia [Recovered/Resolved]
  - Pyrexia [Recovered/Resolved]
  - Neutropenia [Unknown]
